FAERS Safety Report 8314310-9 (Version None)
Quarter: 2012Q1

REPORT INFORMATION
  Report Type: 
  Country: None (occurrence: None)
  Receive Date: 20120315
  Receipt Date: 20110325
  Transmission Date: 20120608
  Serious: Yes (Other)
  Sender: FDA-Public Use
  Company Number: PHHY2011US16492

PATIENT
  Age: 46 Year
  Sex: Female
  Weight: 109.8 kg

DRUGS (1)
  1. GILENYA [Suspect]
     Indication: MULTIPLE SCLEROSIS
     Dosage: 10 MG, QD, ORAL
     Route: 048
     Dates: start: 20110221

REACTIONS (5)
  - VOMITING [None]
  - DEPRESSION [None]
  - NAUSEA [None]
  - FATIGUE [None]
  - OVERDOSE [None]
